FAERS Safety Report 9691429 (Version 2)
Quarter: 2014Q1

REPORT INFORMATION
  Report Type: Report from Study
  Country: DE (occurrence: DE)
  Receive Date: 20131115
  Receipt Date: 20140131
  Transmission Date: 20141002
  Serious: Yes (Other)
  Sender: FDA-Public Use
  Company Number: DE-CELGENEUS-062-50794-13110712

PATIENT
  Age: 38 Year
  Sex: Female

DRUGS (25)
  1. VIDAZA [Suspect]
     Indication: ACUTE MYELOID LEUKAEMIA
     Route: 050
  2. CEPHALOSPORIN [Concomitant]
     Indication: PHARYNGITIS
     Route: 065
  3. CLEXANE [Concomitant]
     Indication: THROMBOSIS
     Route: 065
     Dates: start: 20110523, end: 20110523
  4. CLEXANE [Concomitant]
     Dosage: .3 MILLILITER
     Route: 065
     Dates: start: 20110528, end: 20110528
  5. CLEXANE [Concomitant]
     Route: 065
     Dates: start: 20110521, end: 20110525
  6. CLEXANE [Concomitant]
     Route: 065
     Dates: start: 20110609, end: 20110609
  7. CLEXANE [Concomitant]
     Route: 065
     Dates: start: 20110609, end: 20110614
  8. TRAMADOL [Concomitant]
     Indication: PAIN
     Dosage: 20 DROPS
     Route: 065
     Dates: start: 20110518, end: 20110518
  9. TRAMADOL [Concomitant]
     Dosage: 20 DROPS
     Route: 065
     Dates: start: 20110522, end: 20110522
  10. MACROGOL [Concomitant]
     Indication: CONSTIPATION
     Dosage: 1
     Route: 065
     Dates: start: 20110518, end: 20110518
  11. L-THYROXIN [Concomitant]
     Indication: HYPOTHYROIDISM
     Dosage: 75 MILLIGRAM
     Route: 065
     Dates: start: 20110516, end: 20110628
  12. NORATHISTERON [Concomitant]
     Indication: CONTRACEPTION
     Dosage: 20 MILLIGRAM
     Route: 065
     Dates: start: 20110502, end: 20110628
  13. PANTOPRAZOLE [Concomitant]
     Indication: PROPHYLAXIS
     Dosage: 40 MILLIGRAM
     Route: 065
     Dates: start: 20110516, end: 20110628
  14. POSACONAZOL [Concomitant]
     Indication: PROPHYLAXIS
     Route: 065
     Dates: start: 20110521, end: 20110603
  15. POSACONAZOL [Concomitant]
     Route: 065
     Dates: start: 20110609, end: 20110614
  16. ONDASETRON [Concomitant]
     Indication: NAUSEA
     Route: 065
     Dates: start: 20110516, end: 20110519
  17. ONDASETRON [Concomitant]
     Route: 065
     Dates: start: 20110520, end: 20110523
  18. LEVOFLOXACIN [Concomitant]
     Indication: PROPHYLAXIS
     Dosage: 500 MILLIGRAM
     Route: 065
     Dates: start: 20110516, end: 20110516
  19. LEVOFLOXACIN [Concomitant]
     Dosage: 500 MILLIGRAM
     Route: 065
     Dates: start: 20110520, end: 20110603
  20. LEVOFLOXACIN [Concomitant]
     Dosage: 500 MILLIGRAM
     Route: 065
     Dates: start: 20110609, end: 20110614
  21. DEXAMETHASONE [Concomitant]
     Indication: PRODUCT USED FOR UNKNOWN INDICATION
     Route: 065
     Dates: start: 20110516, end: 20110518
  22. ALIZEPRID [Concomitant]
     Indication: NAUSEA
     Dosage: VIAL
     Route: 065
     Dates: start: 20110516, end: 20110521
  23. ALIZEPRID [Concomitant]
     Dosage: VIAL
     Route: 065
     Dates: start: 20110522, end: 20110524
  24. MCP [Concomitant]
     Indication: NAUSEA
     Dosage: VIAL
     Route: 065
     Dates: start: 20110517, end: 20110517
  25. LORAZEPAM [Concomitant]
     Indication: PROPHYLAXIS OF NAUSEA AND VOMITING
     Dosage: VIAL
     Route: 065
     Dates: start: 20110522, end: 20110522

REACTIONS (1)
  - Vaginal haemorrhage [Unknown]
